FAERS Safety Report 8179067-3 (Version None)
Quarter: 2012Q1

REPORT INFORMATION
  Report Type: 
  Country: None (occurrence: None)
  Receive Date: 20120302
  Receipt Date: 20120131
  Transmission Date: 20120608
  Serious: Yes (Other)
  Sender: FDA-Public Use
  Company Number: US-ROCHE-784940

PATIENT
  Sex: Female
  Weight: 43.1 kg

DRUGS (3)
  1. IBUPROFEN TABLETS [Concomitant]
  2. ACCUTANE [Suspect]
     Indication: ACNE
     Dates: start: 19990101, end: 20000321
  3. ASPIRIN [Concomitant]

REACTIONS (9)
  - COLITIS ISCHAEMIC [None]
  - DEPRESSION [None]
  - INTESTINAL OBSTRUCTION [None]
  - BLOOD CHOLESTEROL INCREASED [None]
  - INFLAMMATORY BOWEL DISEASE [None]
  - IRRITABLE BOWEL SYNDROME [None]
  - INJURY [None]
  - DRY SKIN [None]
  - ACNE [None]
